FAERS Safety Report 8739710 (Version 2)
Quarter: 2012Q4

REPORT INFORMATION
  Report Type: Report from Study
  Country: JP (occurrence: JP)
  Receive Date: 20120823
  Receipt Date: 20121123
  Transmission Date: 20130627
  Serious: Yes (Death)
  Sender: FDA-Public Use
  Company Number: JP-ROCHE-1102298

PATIENT

DRUGS (15)
  1. TOCILIZUMAB [Suspect]
     Indication: RHEUMATOID ARTHRITIS
     Route: 064
     Dates: start: 20080902, end: 20080929
  2. TOCILIZUMAB [Suspect]
     Route: 064
     Dates: start: 20081021, end: 20090818
  3. TOCILIZUMAB [Suspect]
     Route: 064
     Dates: start: 20090915
  4. TOCILIZUMAB [Suspect]
     Route: 064
     Dates: start: 2010, end: 20100205
  5. CANDESARTAN CILEXETIL [Suspect]
     Indication: HYPERTENSION
     Dosage: Dosage is uncertain.
     Route: 064
     Dates: end: 20100301
  6. NEOISCOTIN [Concomitant]
     Indication: RHEUMATOID ARTHRITIS
     Route: 064
  7. PREDNISOLONE [Concomitant]
     Indication: RHEUMATOID ARTHRITIS
     Route: 064
     Dates: start: 20090203
  8. PYRIDOXAL PHOSPHATE [Concomitant]
     Indication: PROPHYLAXIS
     Route: 064
  9. TAKEPRON [Concomitant]
     Indication: PROPHYLAXIS
     Route: 064
  10. PRAVASTATIN [Concomitant]
     Indication: HYPERLIPIDAEMIA
     Route: 064
  11. LASIX [Concomitant]
     Indication: HYPERTENSION
     Route: 064
  12. FERROMIA [Concomitant]
     Indication: IRON DEFICIENCY ANAEMIA
     Route: 064
     Dates: start: 20081209
  13. ACTONEL [Concomitant]
     Indication: PROPHYLAXIS
     Route: 064
     Dates: start: 20080928
  14. CALFINA [Concomitant]
     Indication: PROPHYLAXIS
     Route: 064
     Dates: start: 20090106
  15. LIPITOR [Concomitant]
     Indication: HYPERLIPIDAEMIA
     Route: 064
     Dates: end: 20100301

REACTIONS (1)
  - Foetal death [Fatal]
